FAERS Safety Report 24602682 (Version 1)
Quarter: 2024Q4

REPORT INFORMATION
  Report Type: Spontaneous
  Country: GB (occurrence: GB)
  Receive Date: 20241111
  Receipt Date: 20241111
  Transmission Date: 20250115
  Serious: Yes (Life-Threatening, Other)
  Sender: AUROBINDO
  Company Number: GB-MHRA-EMIS-2232-dfbd12dc-9e96-4456-b566-43963d4b0bea

PATIENT
  Age: 66 Year
  Sex: Female
  Weight: 58 kg

DRUGS (6)
  1. RAMIPRIL [Suspect]
     Active Substance: RAMIPRIL
     Indication: Product used for unknown indication
     Dosage: 1 DOSAGE FORM, ONCE A DAY
     Route: 065
     Dates: start: 20241007
  2. CITALOPRAM [Concomitant]
     Active Substance: CITALOPRAM
     Indication: Product used for unknown indication
     Dosage: 1 DOSAGE FORM, ONCE A DAY
     Route: 065
     Dates: start: 20240729, end: 20240911
  3. Audavate rd [Concomitant]
     Indication: Product used for unknown indication
     Dosage: UNK (APPLY THINLY TWICE A DAY FOR 3 WEEKS, THEN BOOK ANOTHER APPOINTMENT TO REVIEW THE SKIN LESION10
     Route: 065
     Dates: start: 20240729, end: 20240910
  4. ESCITALOPRAM [Concomitant]
     Active Substance: ESCITALOPRAM OXALATE
     Indication: Product used for unknown indication
     Dosage: 1 DOSAGE FORM, ONCE A DAY
     Route: 065
     Dates: start: 20240911
  5. CLOTRIMAZOLE [Concomitant]
     Active Substance: CLOTRIMAZOLE
     Indication: Product used for unknown indication
     Dosage: 500 MILLIGRAM, AS DIRECTED (STRENGTH: 500 MG, DOSAGE FORM: PESSARY)
     Route: 067
     Dates: start: 20240911
  6. CLOTRIMAZOLE [Concomitant]
     Active Substance: CLOTRIMAZOLE
     Dosage: UNK, AS DIRECTED (STRENGTH:2%, DOSAGE FORM:CREAM))
     Route: 065
     Dates: start: 20240911

REACTIONS (3)
  - Lip swelling [Unknown]
  - Swelling face [Unknown]
  - Angioedema [Unknown]
